FAERS Safety Report 21871632 (Version 5)
Quarter: 2023Q2

REPORT INFORMATION
  Report Type: Spontaneous
  Country: CA (occurrence: CA)
  Receive Date: 20230117
  Receipt Date: 20230530
  Transmission Date: 20230722
  Serious: Yes (Other)
  Sender: FDA-Public Use
  Company Number: CA-PFIZER INC-202300015844

PATIENT
  Age: 35 Year
  Sex: Male
  Weight: 68 kg

DRUGS (1)
  1. ABRILADA [Suspect]
     Active Substance: ADALIMUMAB-AFZB
     Indication: Crohn^s disease
     Dosage: 40 MG, EVERY 2 WEEK, PREFILLED SYRINGE
     Route: 058
     Dates: start: 20220521, end: 202302

REACTIONS (4)
  - Nasal congestion [Not Recovered/Not Resolved]
  - Chronic sinusitis [Unknown]
  - Dizziness [Unknown]
  - Ear congestion [Unknown]

NARRATIVE: CASE EVENT DATE: 20221201
